FAERS Safety Report 19946600 (Version 5)
Quarter: 2025Q2

REPORT INFORMATION
  Report Type: Report from Study
  Country: NL (occurrence: NL)
  Receive Date: 20211013
  Receipt Date: 20250506
  Transmission Date: 20250717
  Serious: Yes (Hospitalization, Other)
  Sender: CSL BEHRING
  Company Number: NL-BEH-2021136614

PATIENT
  Age: 40 Year
  Sex: Female
  Weight: 68 kg

DRUGS (6)
  1. PRIVIGEN [Suspect]
     Active Substance: HUMAN IMMUNOGLOBULIN G
     Indication: Epilepsy
     Dosage: 27 GRAM, QD
     Route: 042
     Dates: start: 20210927
  2. INSULIN NOS [Concomitant]
     Active Substance: INSULIN NOS
     Indication: Hyperglycaemia
     Route: 065
  3. INSULIN NOS [Concomitant]
     Active Substance: INSULIN NOS
     Route: 065
     Dates: start: 20210927, end: 20211001
  4. VALPROATE SODIUM [Concomitant]
     Active Substance: VALPROATE SODIUM
     Route: 065
  5. LAMOTRIGINE [Concomitant]
     Active Substance: LAMOTRIGINE
     Route: 065
  6. MIDAZOLAM [Concomitant]
     Active Substance: MIDAZOLAM
     Indication: Seizure
     Route: 045

REACTIONS (16)
  - Superficial vein thrombosis [Recovered/Resolved]
  - Hyperglycaemia [Recovered/Resolved]
  - Hyperglycaemia [Recovered/Resolved]
  - Blood glucose increased [Recovered/Resolved]
  - Urinary tract infection [Recovered/Resolved]
  - Dysuria [Recovered/Resolved]
  - Dizziness [Recovered/Resolved]
  - Feeling abnormal [Recovered/Resolved]
  - Headache [Recovered/Resolved]
  - Nausea [Recovered/Resolved]
  - Blood immunoglobulin G increased [Recovered/Resolved]
  - Blood glucose increased [Recovered/Resolved]
  - Blood immunoglobulin G increased [Not Recovered/Not Resolved]
  - Infusion site erythema [Recovered/Resolved]
  - Infusion site warmth [Recovered/Resolved]
  - Off label use [Unknown]

NARRATIVE: CASE EVENT DATE: 20210928
